FAERS Safety Report 21560621 (Version 1)
Quarter: 2022Q4

REPORT INFORMATION
  Report Type: Other
  Country: GB (occurrence: GB)
  Receive Date: 20221107
  Receipt Date: 20221107
  Transmission Date: 20230112
  Serious: Yes (Disabling)
  Sender: FDA-Public Use
  Company Number: GB-MACLEODS PHARMACEUTICALS US LTD-MAC2022038148

PATIENT

DRUGS (14)
  1. TAMSULOSIN HYDROCHLORIDE [Suspect]
     Active Substance: TAMSULOSIN HYDROCHLORIDE
     Indication: Product used for unknown indication
     Dosage: 0.4 MILLIGRAM, QD (START DATE 10 OCT 2022)
     Route: 065
     Dates: start: 20221010
  2. INSULIN GLARGINE [Concomitant]
     Active Substance: INSULIN GLARGINE
     Indication: Product used for unknown indication
     Dosage: UNK, PRN (USE AS DIRECTED, START DATE 15 FEB 2022)
     Route: 065
     Dates: start: 20220215
  3. ASPIRIN [Concomitant]
     Active Substance: ASPIRIN
     Indication: Product used for unknown indication
     Dosage: 1 DOSAGE FORM, QD (11 OCT 2021)
     Route: 065
     Dates: start: 20211011
  4. ATORVASTATIN [Concomitant]
     Active Substance: ATORVASTATIN
     Indication: Product used for unknown indication
     Dosage: 1 DOSAGE FORM, QD (START DATE 11 OCT 2021)
     Route: 065
     Dates: start: 20211011
  5. BISOPROLOL [Concomitant]
     Active Substance: BISOPROLOL
     Indication: Product used for unknown indication
     Dosage: 1 DOSAGE FORM, BID (START DATE 11 OCT 2021)
     Route: 065
     Dates: start: 20211011
  6. EMPAGLIFLOZIN [Concomitant]
     Active Substance: EMPAGLIFLOZIN
     Indication: Product used for unknown indication
     Dosage: 1 DOSAGE FORM, QD (START DATE 15 NOV 2021)
     Route: 065
     Dates: start: 20211115
  7. EPLERENONE [Concomitant]
     Active Substance: EPLERENONE
     Indication: Product used for unknown indication
     Dosage: 1 DOSAGE FORM, QD(IN THE MORNING, START DATE 11 OCT 2021)
     Route: 065
     Dates: start: 20211011
  8. FAMOTIDINE [Concomitant]
     Active Substance: FAMOTIDINE
     Indication: Product used for unknown indication
     Dosage: 1 DOSAGE FORM, QD (AT NIGHT, START DATE 11 OCT 2021)
     Route: 065
     Dates: start: 20211011
  9. GLICLAZIDE [Concomitant]
     Active Substance: GLICLAZIDE
     Indication: Product used for unknown indication
     Dosage: UNK, BID (ONE TABLET WITH BREAKFAST AND ONE WITH THE EVENING, START DATE 11 OCT 2021)
     Route: 065
     Dates: start: 20211011
  10. HYDROXOCOBALAMIN [Concomitant]
     Active Substance: HYDROXOCOBALAMIN
     Indication: Product used for unknown indication
     Dosage: 1 DOSAGE FORM ONCE IN 3 MONTHS (START DATE 11 OCT 2021)
     Route: 030
     Dates: start: 20211011
  11. NICORANDIL [Concomitant]
     Active Substance: NICORANDIL
     Indication: Product used for unknown indication
     Dosage: 1 DOSAGE FORM, BID (START DATE 11 OCT 2021)
     Route: 065
     Dates: start: 20211011
  12. CALCIUM CARBONATE\SODIUM ALGINATE\SODIUM BICARBONATE [Concomitant]
     Active Substance: CALCIUM CARBONATE\SODIUM ALGINATE\SODIUM BICARBONATE
     Indication: Product used for unknown indication
     Dosage: UNK, PRN (2 X 5ML SPOON 4 TIMES/DAY IF NEEDED, START DATE 11 OCT 2021)
     Route: 065
     Dates: start: 20211011
  13. RAMIPRIL [Concomitant]
     Active Substance: RAMIPRIL
     Indication: Product used for unknown indication
     Dosage: 1 DOSAGE FORM, QD (TAKE ONE DAILY IN ADDITION TO THE 2.5MG DOSE, START DATE 11 OCT 2021), TAKE ONE D
     Route: 065
     Dates: start: 20211011
  14. TICAGRELOR [Concomitant]
     Active Substance: TICAGRELOR
     Indication: Product used for unknown indication
     Dosage: 1 DOSAGE FORM, BID (STOP AUGUST 2022)
     Route: 065
     Dates: start: 20211011, end: 20220822

REACTIONS (1)
  - Dizziness [Recovering/Resolving]

NARRATIVE: CASE EVENT DATE: 20221014
